FAERS Safety Report 16761215 (Version 1)
Quarter: 2019Q3

REPORT INFORMATION
  Report Type: Spontaneous
  Country: US (occurrence: US)
  Receive Date: 20190830
  Receipt Date: 20190830
  Transmission Date: 20191005
  Serious: No
  Sender: FDA-Public Use
  Company Number: US-ANIPHARMA-2019-US-008748

PATIENT
  Age: 60 Year
  Sex: Female

DRUGS (4)
  1. VITAMINS UNSPECIFIED [Concomitant]
     Active Substance: VITAMINS
  2. ARIMIDEX [Suspect]
     Active Substance: ANASTROZOLE
     Indication: PRODUCT USED FOR UNKNOWN INDICATION
     Dosage: 1 TAB DAILY
     Route: 048
     Dates: start: 20190202, end: 201904
  3. MELATONIN [Concomitant]
     Active Substance: MELATONIN
  4. HERCEPTIN INJECTION [Concomitant]

REACTIONS (1)
  - Depressed mood [Recovered/Resolved]

NARRATIVE: CASE EVENT DATE: 20190205
